FAERS Safety Report 4808242-8 (Version None)
Quarter: 2005Q4

REPORT INFORMATION
  Report Type: 
  Country: None (occurrence: None)
  Receive Date: 20051021
  Receipt Date: 20041028
  Transmission Date: 20060501
  Serious: No
  Sender: FDA-Public Use
  Company Number: EWC041141237

PATIENT
  Age: 82 Year
  Sex: Female

DRUGS (4)
  1. ZYPREXA [Suspect]
     Indication: DEPRESSION
     Dosage: 2.5 MG DAY
     Dates: start: 20040817
  2. ANTABUSE [Concomitant]
  3. EFFEXOR [Concomitant]
  4. TOLVON (MIANSERIN HYDROCHLORIDE) [Concomitant]

REACTIONS (2)
  - EMBOLISM [None]
  - FALL [None]
